FAERS Safety Report 22084575 (Version 3)
Quarter: 2025Q4

REPORT INFORMATION
  Report Type: Report from Study
  Country: MX (occurrence: MX)
  Receive Date: 20230310
  Receipt Date: 20251006
  Transmission Date: 20260118
  Serious: Yes (Other)
  Sender: NOVARTIS
  Company Number: MX-002147023-NVSC2022MX176068

PATIENT
  Sex: Male
  Weight: 73 kg

DRUGS (2)
  1. TASIGNA [Suspect]
     Active Substance: NILOTINIB
     Indication: Chronic myeloid leukaemia
     Dosage: UNK (STARTED FROM 7 YEARS AGO APPROXIMATELY)
     Route: 048
  2. TASIGNA [Suspect]
     Active Substance: NILOTINIB
     Dosage: 4 DOSAGE FORM, QD (2 IN MORNING, 2 IN AFTERNOON)
     Route: 048

REACTIONS (12)
  - Diabetes mellitus [Unknown]
  - Embolism [Unknown]
  - Limb discomfort [Unknown]
  - Oral discomfort [Unknown]
  - Eating disorder [Unknown]
  - Speech disorder [Unknown]
  - Anger [Unknown]
  - Mood altered [Unknown]
  - Discouragement [Unknown]
  - Feeling of despair [Unknown]
  - Dizziness [Unknown]
  - Weight increased [Unknown]
